FAERS Safety Report 5053691-9 (Version None)
Quarter: 2006Q3

REPORT INFORMATION
  Report Type: 
  Country: None (occurrence: None)
  Receive Date: 20060718
  Receipt Date: 20060622
  Transmission Date: 20061208
  Serious: Yes (Death)
  Sender: FDA-Public Use
  Company Number: CN-ROCHE-452638

PATIENT
  Age: 64 Year
  Sex: Female

DRUGS (3)
  1. CAPECITABINE [Suspect]
     Indication: GASTRIC CANCER
     Route: 048
     Dates: start: 20050117, end: 20050523
  2. ELOXATIN [Suspect]
     Indication: GASTRIC CANCER
     Route: 042
     Dates: start: 20050206, end: 20050523
  3. ELOXATIN [Suspect]
     Route: 042
     Dates: start: 20050117, end: 20050206

REACTIONS (7)
  - ABDOMINAL PAIN UPPER [None]
  - COMA [None]
  - CONFUSIONAL STATE [None]
  - HEADACHE [None]
  - MULTI-ORGAN FAILURE [None]
  - PURPURA [None]
  - THROMBOCYTOPENIA [None]
